FAERS Safety Report 25303709 (Version 1)
Quarter: 2025Q2

REPORT INFORMATION
  Report Type: Spontaneous
  Country: IE (occurrence: IE)
  Receive Date: 20250513
  Receipt Date: 20250513
  Transmission Date: 20250717
  Serious: Yes (Other)
  Sender: AMGEN
  Company Number: None

PATIENT
  Age: 82 Year
  Sex: Female
  Weight: 49 kg

DRUGS (7)
  1. PROLIA [Suspect]
     Active Substance: DENOSUMAB
     Indication: Osteoporosis
     Route: 058
     Dates: start: 20241125, end: 20241125
  2. ZOLPIDEM [Concomitant]
     Active Substance: ZOLPIDEM TARTRATE
     Indication: Sleep disorder
     Route: 048
     Dates: start: 20210921
  3. CANDESARTAN [Concomitant]
     Active Substance: CANDESARTAN
     Indication: Hypertension
     Route: 048
     Dates: start: 20220708
  4. ESTRIOL [Concomitant]
     Active Substance: ESTRIOL
     Indication: Atrophy
     Route: 067
     Dates: start: 20231227
  5. Dnord [Concomitant]
     Indication: Osteoporosis
     Dosage: 225 MICROGRAM, QMO
     Route: 048
     Dates: start: 20240627
  6. Solpadeine [Concomitant]
     Indication: Pain
     Route: 048
     Dates: start: 20240829
  7. ACETAMINOPHEN [Concomitant]
     Active Substance: ACETAMINOPHEN
     Indication: Pain
     Route: 048
     Dates: start: 20240627

REACTIONS (3)
  - Breast pain [Not Recovered/Not Resolved]
  - Breast discomfort [Not Recovered/Not Resolved]
  - Nipple pain [Not Recovered/Not Resolved]

NARRATIVE: CASE EVENT DATE: 20241225
